FAERS Safety Report 17325917 (Version 3)
Quarter: 2020Q2

REPORT INFORMATION
  Report Type: Spontaneous
  Country: US (occurrence: US)
  Receive Date: 20200127
  Receipt Date: 20200413
  Transmission Date: 20200713
  Serious: Yes (Hospitalization, Other)
  Sender: FDA-Public Use
  Company Number: US-PFIZER INC-2020034433

PATIENT
  Age: 62 Year
  Sex: Female
  Weight: 106.5 kg

DRUGS (12)
  1. LYRICA [Suspect]
     Active Substance: PREGABALIN
     Indication: BACK PAIN
  2. VITAMIN D [ERGOCALCIFEROL] [Concomitant]
     Active Substance: ERGOCALCIFEROL
     Indication: OSTEOPOROSIS
     Dosage: 50000 MG, WEEKLY
     Dates: start: 201911
  3. LYRICA [Suspect]
     Active Substance: PREGABALIN
     Indication: MIGRAINE
     Dosage: 25 MG, 3X/DAY
     Dates: start: 20151031
  4. LYRICA [Suspect]
     Active Substance: PREGABALIN
     Indication: HEADACHE
  5. FLUOXETINE HCL [Concomitant]
     Active Substance: FLUOXETINE HYDROCHLORIDE
     Indication: DEPRESSION
     Dosage: 20 MG, 3X/DAY
  6. FLUOXETINE HCL [Concomitant]
     Active Substance: FLUOXETINE HYDROCHLORIDE
     Indication: ANXIETY
  7. VALIUM [Concomitant]
     Active Substance: DIAZEPAM
     Dosage: 10 MG, DAILY
     Dates: start: 201911
  8. LYRICA [Suspect]
     Active Substance: PREGABALIN
     Indication: PAIN IN EXTREMITY
  9. PERCOCET [Concomitant]
     Active Substance: ACETAMINOPHEN\OXYCODONE HYDROCHLORIDE
     Indication: BONE DISORDER
     Dosage: UNK UNK, 3X/DAY (10-325MG)
     Dates: start: 2018
  10. LIDOCAINE. [Concomitant]
     Active Substance: LIDOCAINE
     Dosage: 5 %, 1X/DAY
     Dates: start: 2015
  11. VITAMIN D [ERGOCALCIFEROL] [Concomitant]
     Active Substance: ERGOCALCIFEROL
     Indication: ARTHRITIS
  12. WELLBUTRIN XL [Concomitant]
     Active Substance: BUPROPION HYDROCHLORIDE
     Indication: DEPRESSION
     Dosage: 300 MG, DAILY

REACTIONS (4)
  - Insomnia [Unknown]
  - Headache [Unknown]
  - Pain [Not Recovered/Not Resolved]
  - Muscle spasms [Unknown]
